FAERS Safety Report 16625156 (Version 1)
Quarter: 2019Q3

REPORT INFORMATION
  Report Type: Spontaneous
  Country: US (occurrence: US)
  Receive Date: 20190611
  Receipt Date: 20190611
  Transmission Date: 20191004
  Serious: No
  Sender: FDA-Public Use
  Company Number: None

PATIENT
  Age: 30 Year
  Sex: Female

DRUGS (13)
  1. SULFASALAZINE DELAYED-RELEASE [Concomitant]
     Active Substance: SULFASALAZINE
  2. GABAPETNIN [Concomitant]
  3. HYDROXCHLOR [Concomitant]
  4. OMEPRAZOLE. [Concomitant]
     Active Substance: OMEPRAZOLE
  5. DEXTROAMPHET SACCHARAT, AMPHET ASPARTATE, DEXTROAMPHET SULFATE AND AMPHET SULFAT [Concomitant]
     Active Substance: AMPHETAMINE ASPARTATE\AMPHETAMINE SULFATE\DEXTROAMPHETAMINE SACCHARATE\DEXTROAMPHETAMINE SULFATE
  6. FIASP INJ [Concomitant]
  7. NAPAROXEN [Concomitant]
  8. PRENISONE [Concomitant]
     Active Substance: PREDNISONE
  9. RASUVO [Concomitant]
     Active Substance: METHOTREXATE SODIUM
  10. ACTEMRA [Suspect]
     Active Substance: TOCILIZUMAB
     Indication: RHEUMATOID ARTHRITIS
     Dosage: ?          OTHER FREQUENCY:Q 7 DAYS;?
     Route: 058
     Dates: start: 20190214
  11. FOLIC ACID. [Concomitant]
     Active Substance: FOLIC ACID
  12. MELOXICAM. [Concomitant]
     Active Substance: MELOXICAM
  13. NOVOLIN [Concomitant]
     Active Substance: INSULIN HUMAN

REACTIONS (2)
  - Surgery [None]
  - Therapy cessation [None]

NARRATIVE: CASE EVENT DATE: 201905
